FAERS Safety Report 15455889 (Version 2)
Quarter: 2018Q4

REPORT INFORMATION
  Report Type: Spontaneous
  Country: JP (occurrence: JP)
  Receive Date: 20181002
  Receipt Date: 20181008
  Transmission Date: 20190204
  Serious: No
  Sender: FDA-Public Use
  Company Number: JP-ALLERGAN-1847232US

PATIENT
  Age: 45 Year
  Sex: Male

DRUGS (1)
  1. ACAMPROSATE CALCIUM - BP [Suspect]
     Active Substance: ACAMPROSATE CALCIUM
     Indication: PRODUCT USED FOR UNKNOWN INDICATION
     Dosage: 333 MG, UNKNOWN
     Route: 048

REACTIONS (1)
  - Pancreatitis [Unknown]
